FAERS Safety Report 8947441 (Version 1)
Quarter: 2012Q4

REPORT INFORMATION
  Report Type: Report from Study
  Country: US (occurrence: US)
  Receive Date: 20121205
  Receipt Date: 20121205
  Transmission Date: 20130627
  Serious: Yes (Hospitalization, Disabling)
  Sender: FDA-Public Use
  Company Number: US-SANOFI-AVENTIS-2012SA087225

PATIENT
  Age: 69 Year
  Sex: Female
  Weight: 79 kg

DRUGS (22)
  1. DOCETAXEL [Suspect]
     Indication: BREAST CANCER
     Dosage: form: vial
dose level: 60 mg/m2
     Route: 042
     Dates: start: 20100128
  2. DOCETAXEL [Suspect]
     Indication: BREAST CANCER
     Dosage: form: vial
dose level: 60 mg/m2
     Route: 042
     Dates: start: 20100423, end: 20100425
  3. TRASTUZUMAB [Suspect]
     Indication: BREAST CANCER
     Dosage: form: vial
dose: 6 mg/kg
     Route: 042
     Dates: start: 20100128
  4. CARBOPLATIN [Suspect]
     Indication: BREAST CANCER
     Dosage: form: vial
     Route: 042
     Dates: start: 20100128
  5. CARBOPLATIN [Suspect]
     Indication: BREAST CANCER
     Dosage: form: vial
DOSE LEVEL REDUCED TO AUC 5
     Route: 042
     Dates: start: 20100423, end: 20100425
  6. PROCHLORPERAZINE [Suspect]
     Indication: DRUG USE FOR UNKNOWN INDICATION
     Route: 065
     Dates: start: 20100225, end: 201005
  7. HYDROCHLOROTHIAZIDE [Concomitant]
     Dosage: Taken From: 2005 E
     Dates: start: 2005
  8. IBUPROFEN [Concomitant]
     Dosage: Taken From: 2009 E
     Dates: start: 2009
  9. QUINIDEX [Concomitant]
     Dosage: Taken From: 2009 E
     Dates: start: 2009
  10. COLACE [Concomitant]
     Dosage: Taken From: 2009 E
     Dates: start: 2009
  11. BENAZEPRIL [Concomitant]
     Dates: start: 20100105
  12. GLUCOPHAGE [Concomitant]
     Dates: start: 20100218
  13. PEGFILGRASTIM [Concomitant]
     Dates: start: 20100129, end: 20100424
  14. DEXAMETHASONE [Concomitant]
     Route: 042
     Dates: start: 20100128, end: 20100423
  15. POTASSIUM [Concomitant]
     Route: 048
     Dates: start: 20100405, end: 20100510
  16. POTASSIUM [Concomitant]
     Route: 042
     Dates: start: 20100510, end: 20100511
  17. POTASSIUM [Concomitant]
     Route: 048
     Dates: start: 20100510
  18. NORMAL SALINE [Concomitant]
     Dates: start: 20100510, end: 20100511
  19. CALCIUM [Concomitant]
     Dates: start: 20100510
  20. VITAMIN D [Concomitant]
     Dates: start: 20100510
  21. LISINOPRIL [Concomitant]
  22. RED BLOOD CELLS [Concomitant]

REACTIONS (2)
  - Tremor [Recovered/Resolved with Sequelae]
  - Deep vein thrombosis [Recovered/Resolved]
